FAERS Safety Report 7327423-5 (Version None)
Quarter: 2011Q1

REPORT INFORMATION
  Report Type: 
  Country: None (occurrence: None)
  Receive Date: 20110303
  Receipt Date: 20110222
  Transmission Date: 20110831
  Serious: Yes (Other)
  Sender: FDA-Public Use
  Company Number: JP-AMGEN-JPNSP2011010558

PATIENT
  Sex: Female

DRUGS (1)
  1. ENBREL [Suspect]
     Indication: RHEUMATOID ARTHRITIS
     Dosage: 25 MG, UNK
     Route: 058
     Dates: start: 20070501

REACTIONS (10)
  - PRODUCTIVE COUGH [None]
  - DYSPHONIA [None]
  - ABULIA [None]
  - WEIGHT DECREASED [None]
  - COUGH [None]
  - DYSPNOEA [None]
  - CARDIAC FAILURE CONGESTIVE [None]
  - MYALGIA [None]
  - PALPITATIONS [None]
  - HOT FLUSH [None]
